FAERS Safety Report 17123293 (Version 2)
Quarter: 2019Q4

REPORT INFORMATION
  Report Type: Spontaneous
  Country: JP (occurrence: JP)
  Receive Date: 20191206
  Receipt Date: 20191220
  Transmission Date: 20200122
  Serious: Yes (Death, Hospitalization, Other)
  Sender: FDA-Public Use
  Company Number: JP-PFIZER INC-2019527841

PATIENT
  Age: 8 Decade
  Sex: Female
  Weight: 59 kg

DRUGS (9)
  1. FOLIAMIN [Concomitant]
     Active Substance: FOLIC ACID
     Dosage: UNK
  2. VALSARTAN. [Concomitant]
     Active Substance: VALSARTAN
     Dosage: UNK
  3. DOXAZOSIN [Concomitant]
     Active Substance: DOXAZOSIN MESYLATE
     Dosage: UNK
  4. METFORMIN [Concomitant]
     Active Substance: METFORMIN HYDROCHLORIDE
     Dosage: 500 MG, 3X/DAY (AFTER EVERY MEAL)
  5. GLIMEPIRIDE. [Concomitant]
     Active Substance: GLIMEPIRIDE
     Dosage: 1 MG, 1X/DAY (AFTER BREAKFAST)
  6. BYDUREON [Concomitant]
     Active Substance: EXENATIDE
     Dosage: 2 MG, WEEKLY
  7. METHOTREXATE SODIUM. [Suspect]
     Active Substance: METHOTREXATE SODIUM
     Indication: RHEUMATOID ARTHRITIS
     Dosage: 3 MG, WEEKLY
     Route: 048
  8. FUROSEMIDE. [Concomitant]
     Active Substance: FUROSEMIDE
     Dosage: UNK
  9. PREDNISOLONE. [Concomitant]
     Active Substance: PREDNISOLONE
     Dosage: 1 MG, DAILY

REACTIONS (3)
  - Lymphoproliferative disorder [Fatal]
  - Respiratory failure [Fatal]
  - Diffuse large B-cell lymphoma [Fatal]
